FAERS Safety Report 5742569-0 (Version None)
Quarter: 2008Q2

REPORT INFORMATION
  Report Type: 
  Country: None (occurrence: None)
  Receive Date: 20080515
  Receipt Date: 20080515
  Transmission Date: 20081010
  Serious: Yes (Life-Threatening, Hospitalization)
  Sender: FDA-Public Use
  Company Number: None

PATIENT
  Sex: Female
  Weight: 120.2032 kg

DRUGS (1)
  1. NUVARING [Suspect]
     Dosage: RING       1 PER MONTH     INTRAUTERI
     Dates: start: 20060201, end: 20080524

REACTIONS (1)
  - PULMONARY EMBOLISM [None]
